FAERS Safety Report 5806293-8 (Version None)
Quarter: 2008Q3

REPORT INFORMATION
  Report Type: 
  Country: None (occurrence: None)
  Receive Date: 20080708
  Receipt Date: 20080604
  Transmission Date: 20090109
  Serious: Yes (Hospitalization)
  Sender: FDA-Public Use
  Company Number: 20085279

PATIENT
  Sex: Male

DRUGS (1)
  1. LIORESAL [Suspect]
     Indication: MUSCLE SPASTICITY
     Dosage: DAILY, INTRATHECAL
     Route: 037

REACTIONS (16)
  - CLONUS [None]
  - DROOLING [None]
  - DRUG INEFFECTIVE [None]
  - DRUG WITHDRAWAL SYNDROME [None]
  - DYSKINESIA [None]
  - HEADACHE [None]
  - HYPERTONIA [None]
  - HYPOTONIA [None]
  - ILL-DEFINED DISORDER [None]
  - INCISION SITE COMPLICATION [None]
  - MUSCLE TIGHTNESS [None]
  - OVERDOSE [None]
  - PENILE PAIN [None]
  - POST PROCEDURAL COMPLICATION [None]
  - PROCEDURAL PAIN [None]
  - PYREXIA [None]
